FAERS Safety Report 17708379 (Version 2)
Quarter: 2020Q2

REPORT INFORMATION
  Report Type: Report from Study
  Country: GB (occurrence: GB)
  Receive Date: 20200426
  Receipt Date: 20200428
  Transmission Date: 20200714
  Serious: Yes (Hospitalization)
  Sender: FDA-Public Use
  Company Number: PHHY2018GB142192

PATIENT
  Age: 12 Year
  Sex: Male
  Weight: 46.3 kg

DRUGS (15)
  1. METRONIDAZOLE. [Concomitant]
     Active Substance: METRONIDAZOLE
     Indication: NECROTISING COLITIS
  2. SODIUM CHLORIDE. [Concomitant]
     Active Substance: SODIUM CHLORIDE
     Indication: ILEOSTOMY
     Dosage: UNK
     Route: 048
     Dates: end: 201606
  3. GENTAMICIN. [Concomitant]
     Active Substance: GENTAMICIN
     Indication: ILEOSTOMY
     Dosage: UNK
     Route: 048
     Dates: end: 201606
  4. LEVETIRACETAM. [Concomitant]
     Active Substance: LEVETIRACETAM
     Indication: EPILEPSY
     Dosage: UNK
     Route: 048
     Dates: start: 20151110
  5. SOMATROPIN. [Suspect]
     Active Substance: SOMATROPIN
     Indication: SMALL FOR DATES BABY
  6. IRON [Concomitant]
     Active Substance: IRON
     Indication: PRODUCT USED FOR UNKNOWN INDICATION
     Dosage: UNK
     Route: 065
     Dates: end: 20180911
  7. ERGOCALCIFEROL. [Concomitant]
     Active Substance: ERGOCALCIFEROL
     Indication: VITAMIN D DECREASED
     Dosage: UNK
     Route: 048
     Dates: start: 20121024, end: 20150722
  8. SOMATROPIN. [Suspect]
     Active Substance: SOMATROPIN
     Indication: FOETAL GROWTH RESTRICTION
     Dosage: 0.7 MG, QD (10 MG/1.5 ML SOLUTION FOR INJECTION)
     Route: 058
     Dates: start: 201304
  9. ABIDEC [Concomitant]
     Indication: ILEOSTOMY
     Dosage: UNK
     Route: 065
     Dates: start: 20150722
  10. ABIDEC [Concomitant]
     Indication: NECROTISING COLITIS
  11. METRONIDAZOLE. [Concomitant]
     Active Substance: METRONIDAZOLE
     Indication: ILEOSTOMY
     Dosage: UNK
     Route: 048
     Dates: end: 201606
  12. SODIUM CHLORIDE. [Concomitant]
     Active Substance: SODIUM CHLORIDE
     Indication: NECROTISING COLITIS
  13. CHOLECALCIFEROL [Concomitant]
     Active Substance: CHOLECALCIFEROL
     Indication: VITAMIN D DECREASED
     Dosage: UNK
     Route: 048
     Dates: start: 20121024, end: 20150722
  14. LOPERAMIDE [Concomitant]
     Active Substance: LOPERAMIDE
     Indication: PRODUCT USED FOR UNKNOWN INDICATION
     Dosage: UNK
     Route: 065
  15. GENTAMICIN. [Concomitant]
     Active Substance: GENTAMICIN
     Indication: NECROTISING COLITIS

REACTIONS (11)
  - Nausea [Recovering/Resolving]
  - Malaise [Recovering/Resolving]
  - Abdominal discomfort [Recovering/Resolving]
  - Gastrointestinal stoma complication [Recovering/Resolving]
  - Thyroid disorder [Recovering/Resolving]
  - Bacterial infection [Recovering/Resolving]
  - Haemorrhage [Recovering/Resolving]
  - Abdominal pain [Recovering/Resolving]
  - Scoliosis [Recovering/Resolving]
  - Weight decreased [Recovering/Resolving]
  - Vomiting [Recovering/Resolving]

NARRATIVE: CASE EVENT DATE: 201808
